FAERS Safety Report 8127777-6 (Version None)
Quarter: 2012Q1

REPORT INFORMATION
  Report Type: 
  Country: None (occurrence: None)
  Receive Date: 20120210
  Receipt Date: 20120131
  Transmission Date: 20120608
  Serious: Yes (Other)
  Sender: FDA-Public Use
  Company Number: US-JNJFOC-20120201069

PATIENT
  Sex: Female
  Weight: 80.29 kg

DRUGS (3)
  1. REMICADE [Suspect]
     Indication: CROHN'S DISEASE
     Route: 042
  2. IRON [Suspect]
     Indication: ANAEMIA
     Route: 065
  3. DIOVAN [Concomitant]
     Indication: BLOOD PRESSURE
     Route: 065

REACTIONS (10)
  - THYROID DISORDER [None]
  - PAIN [None]
  - ANAEMIA [None]
  - HEADACHE [None]
  - CROHN'S DISEASE [None]
  - PNEUMONIA [None]
  - TENDONITIS [None]
  - SINUSITIS [None]
  - DIABETES MELLITUS [None]
  - BLOOD PRESSURE DECREASED [None]
